FAERS Safety Report 6537883-5 (Version None)
Quarter: 2010Q1

REPORT INFORMATION
  Report Type: 
  Country: None (occurrence: None)
  Receive Date: 20100114
  Receipt Date: 20100106
  Transmission Date: 20100710
  Serious: Yes (Hospitalization, Other)
  Sender: FDA-Public Use
  Company Number: US-AMGEN-QUU378380

PATIENT
  Sex: Male
  Weight: 84.4 kg

DRUGS (16)
  1. ENBREL [Suspect]
     Indication: RHEUMATOID ARTHRITIS
     Route: 058
     Dates: start: 20061211, end: 20091202
  2. PLAQUENIL [Concomitant]
  3. NEXIUM [Concomitant]
  4. SYNTHROID [Concomitant]
  5. COLACE [Concomitant]
  6. METHOTREXATE [Concomitant]
     Route: 048
     Dates: start: 19850101, end: 20081201
  7. FOLIC ACID [Concomitant]
  8. LOZOL [Concomitant]
  9. OS-CAL + D [Concomitant]
  10. POTASSIUM [Concomitant]
  11. LASIX [Concomitant]
  12. PRAVACHOL [Concomitant]
  13. CARVEDILOL [Concomitant]
  14. DITROPAN [Concomitant]
  15. SOTALOL [Concomitant]
  16. XOPENEX [Concomitant]

REACTIONS (10)
  - ANAEMIA [None]
  - ARTHRALGIA [None]
  - CORONARY ARTERY DISEASE [None]
  - INCORRECT ROUTE OF DRUG ADMINISTRATION [None]
  - MACROCYTOSIS [None]
  - NEPHROLITHIASIS [None]
  - OBESITY [None]
  - PERICARDITIS CONSTRICTIVE [None]
  - PULMONARY FIBROSIS [None]
  - RENAL CELL CARCINOMA [None]
